FAERS Safety Report 4437760-X (Version None)
Quarter: 2004Q3

REPORT INFORMATION
  Report Type: 
  Country: None (occurrence: None)
  Receive Date: 20040831
  Receipt Date: 20040105
  Transmission Date: 20050211
  Serious: No
  Sender: FDA-Public Use
  Company Number: S2003US14047

PATIENT
  Sex: Female

DRUGS (1)
  1. ACYCLOVIR [Suspect]
     Indication: HERPES VIRUS INFECTION
     Route: 065

REACTIONS (5)
  - ARTHRALGIA [None]
  - HERPES SIMPLEX [None]
  - HYPERSENSITIVITY [None]
  - PAIN [None]
  - PRURITUS [None]
